FAERS Safety Report 17370585 (Version 2)
Quarter: 2020Q2

REPORT INFORMATION
  Report Type: Report from Study
  Country: None (occurrence: US)
  Receive Date: 20200205
  Receipt Date: 20200427
  Transmission Date: 20200713
  Serious: Yes (Other)
  Sender: FDA-Public Use
  Company Number: US-ABBVIE-19K-163-2647328-00

PATIENT
  Age: 60 Year
  Sex: Female
  Weight: 68.1 kg

DRUGS (3)
  1. HUMIRA [Suspect]
     Active Substance: ADALIMUMAB
     Indication: RHEUMATOID ARTHRITIS
     Dosage: CITRATE FREE
     Route: 058
     Dates: end: 2020
  2. SHINGRIX [Concomitant]
     Active Substance: RECOMBINANT VARICELLA ZOSTER VIRUS (VZV) GLYCOPROTEIN E
     Indication: PRODUCT USED FOR UNKNOWN INDICATION
  3. HUMIRA [Suspect]
     Active Substance: ADALIMUMAB
     Dosage: CITRATE FREE
     Route: 058
     Dates: start: 202003

REACTIONS (11)
  - Cataract operation complication [Unknown]
  - Cataract [Unknown]
  - Lenticular opacities [Unknown]
  - Tooth extraction [Recovering/Resolving]
  - Discomfort [Unknown]
  - Pain in extremity [Unknown]
  - Vitreous floaters [Not Recovered/Not Resolved]
  - Sleep apnoea syndrome [Unknown]
  - Injection site pain [Recovered/Resolved]
  - Contraindicated product administered [Recovered/Resolved]
  - Pain in extremity [Recovered/Resolved]

NARRATIVE: CASE EVENT DATE: 20190124
